FAERS Safety Report 7498876-7 (Version None)
Quarter: 2011Q2

REPORT INFORMATION
  Report Type: 
  Country: None (occurrence: None)
  Receive Date: 20110524
  Receipt Date: 20110512
  Transmission Date: 20111010
  Serious: Yes (Hospitalization)
  Sender: FDA-Public Use
  Company Number: FR-AMGEN-FRASP2011025362

PATIENT
  Age: 13 Year
  Sex: Male
  Weight: 28.4 kg

DRUGS (2)
  1. ADVIL LIQUI-GELS [Suspect]
     Indication: JUVENILE ARTHRITIS
     Dosage: 400 MG, 4X/DAY
     Route: 048
  2. ENBREL [Suspect]
     Indication: JUVENILE ARTHRITIS
     Dosage: 15 MG, 2X/WEEK
     Route: 058
     Dates: start: 20100101

REACTIONS (2)
  - CALCULUS URINARY [None]
  - RENAL COLIC [None]
